FAERS Safety Report 9120198 (Version 1)
Quarter: 2013Q1

REPORT INFORMATION
  Report Type: Spontaneous
  Country: US (occurrence: US)
  Receive Date: 20130226
  Receipt Date: 20130226
  Transmission Date: 20140127
  Serious: Yes (Other)
  Sender: FDA-Public Use
  Company Number: US-PFIZER INC-2013068545

PATIENT
  Age: 10 Year
  Sex: Female

DRUGS (1)
  1. RAPAMUNE [Suspect]
     Indication: THROMBOCYTOPENIA
     Dosage: 3.5 MG, 1X/DAY
     Dates: start: 20121205

REACTIONS (4)
  - Pancytopenia [Unknown]
  - Drug intolerance [Unknown]
  - Mucosal inflammation [Unknown]
  - Off label use [Unknown]
